FAERS Safety Report 18818627 (Version 2)
Quarter: 2021Q1

REPORT INFORMATION
  Report Type: Report from Study
  Country: None (occurrence: US)
  Receive Date: 20210202
  Receipt Date: 20210310
  Transmission Date: 20210419
  Serious: Yes (Other)
  Sender: FDA-Public Use
  Company Number: US-ABBVIE-21K-163-3753599-00

PATIENT
  Age: 60 Year
  Sex: Female
  Weight: 61.29 kg

DRUGS (9)
  1. VITAMIN D [Concomitant]
     Active Substance: VITAMIN D NOS
     Indication: SUPPLEMENTATION THERAPY
  2. OTEZLA [Concomitant]
     Active Substance: APREMILAST
     Indication: PSORIASIS
  3. VITAMIN C [Concomitant]
     Active Substance: ASCORBIC ACID
     Indication: SUPPLEMENTATION THERAPY
  4. BABY ASPIRIN [Concomitant]
     Active Substance: ASPIRIN
     Indication: PROPHYLAXIS
  5. GLUCOSAMINE [Concomitant]
     Active Substance: GLUCOSAMINE
     Indication: SUPPLEMENTATION THERAPY
  6. SKYRIZI [Suspect]
     Active Substance: RISANKIZUMAB-RZAA
     Indication: PSORIASIS
     Route: 058
     Dates: start: 20201028, end: 20201028
  7. SKYRIZI [Suspect]
     Active Substance: RISANKIZUMAB-RZAA
     Route: 058
     Dates: start: 20210119
  8. SPIRONOLACTONE. [Concomitant]
     Active Substance: SPIRONOLACTONE
     Indication: ACNE
  9. SKYRIZI [Suspect]
     Active Substance: RISANKIZUMAB-RZAA
     Indication: PSORIATIC ARTHROPATHY
     Dosage: ONCE FOR 1 DOSE
     Route: 058
     Dates: start: 20201010, end: 20201010

REACTIONS (8)
  - Pain [Recovering/Resolving]
  - Spinal fusion surgery [Unknown]
  - Cervical cord compression [Recovering/Resolving]
  - Neck injury [Recovered/Resolved]
  - Spinal cord compression [Recovering/Resolving]
  - Asthenia [Recovering/Resolving]
  - Muscle atrophy [Recovering/Resolving]
  - Intervertebral disc operation [Unknown]

NARRATIVE: CASE EVENT DATE: 20201106
